FAERS Safety Report 23932987 (Version 2)
Quarter: 2024Q2

REPORT INFORMATION
  Report Type: Spontaneous
  Country: US (occurrence: US)
  Receive Date: 20240603
  Receipt Date: 20240613
  Transmission Date: 20240716
  Serious: Yes (Death)
  Sender: FDA-Public Use
  Company Number: US-BRISTOL-MYERS SQUIBB COMPANY-2024-087662

PATIENT
  Age: 82 Year
  Sex: Female

DRUGS (15)
  1. REVLIMID [Suspect]
     Active Substance: LENALIDOMIDE
     Indication: Plasma cell myeloma
     Dosage: FREQUENCY: 21 (UNITS NOT SPECIFIED)
     Route: 048
     Dates: start: 202106, end: 20240523
  2. NITROGLYCERIN [Concomitant]
     Active Substance: NITROGLYCERIN
     Dates: start: 20240325, end: 20240523
  3. OXYBUTYNIN [Concomitant]
     Active Substance: OXYBUTYNIN\OXYBUTYNIN CHLORIDE
     Dosage: ER
     Dates: start: 20240126, end: 20240523
  4. ROSUVASTATIN [Concomitant]
     Active Substance: ROSUVASTATIN
     Dates: start: 20221205, end: 20240523
  5. SODIUM BICARBONATE [Concomitant]
     Active Substance: SODIUM BICARBONATE
     Dates: start: 20240214, end: 20240523
  6. CARVEDILOL [Concomitant]
     Active Substance: CARVEDILOL
     Dates: start: 20240301, end: 20240523
  7. CILOSTAZOL [Concomitant]
     Active Substance: CILOSTAZOL
     Dates: start: 20240414, end: 20240523
  8. CLOPIDOGREL [Concomitant]
     Active Substance: CLOPIDOGREL BISULFATE
     Dates: start: 20220611, end: 20240523
  9. DEXAMETHASONE [Concomitant]
     Active Substance: DEXAMETHASONE
     Dates: start: 20231129, end: 20240523
  10. EZETIMIBE [Concomitant]
     Active Substance: EZETIMIBE
     Dates: start: 20221205, end: 20240523
  11. FOLIC ACID [Concomitant]
     Active Substance: FOLIC ACID
     Dates: start: 20220609, end: 20240523
  12. GABAPENTIN [Concomitant]
     Active Substance: GABAPENTIN
     Dates: start: 20231027, end: 20240523
  13. ACETAMINOPHEN\HYDROCODONE [Concomitant]
     Active Substance: ACETAMINOPHEN\HYDROCODONE
     Dosage: 5-325
     Dates: start: 20230221, end: 20240523
  14. ISOSORBIDE MONONITRATE [Concomitant]
     Active Substance: ISOSORBIDE MONONITRATE
     Dosage: ER
     Dates: start: 20210129, end: 20240523
  15. MIDODRINE [Concomitant]
     Active Substance: MIDODRINE
     Dates: start: 20240214, end: 20240523

REACTIONS (1)
  - Cardiac disorder [Fatal]
